FAERS Safety Report 20838149 (Version 1)
Quarter: 2022Q2

REPORT INFORMATION
  Report Type: Spontaneous
  Country: US (occurrence: None)
  Receive Date: 20220516
  Receipt Date: 20220516
  Transmission Date: 20220720
  Serious: No
  Sender: FDA-Public Use
  Company Number: None

PATIENT
  Age: 78 Year
  Sex: Female
  Weight: 66.15 kg

DRUGS (10)
  1. BEBTELOVIMAB [Suspect]
     Active Substance: BEBTELOVIMAB
     Indication: COVID-19
     Dates: start: 20220513
  2. DILTIAZEM [Concomitant]
     Active Substance: DILTIAZEM
  3. ROSUVASTATIN [Concomitant]
     Active Substance: ROSUVASTATIN
  4. CHLORTHALIDONE [Concomitant]
     Active Substance: CHLORTHALIDONE
  5. ZOLPIDEM [Concomitant]
  6. ERYTHROMYCIN [Concomitant]
     Active Substance: ERYTHROMYCIN
  7. CALCIUM [Concomitant]
  8. DULCOLAX NOS [Concomitant]
     Active Substance: BISACODYL OR DOCUSATE SODIUM
  9. VITAMIN D [Concomitant]
     Active Substance: VITAMIN D NOS
  10. ALREDS EYE VITAMIN [Concomitant]

REACTIONS (7)
  - Infusion related reaction [None]
  - Feeling hot [None]
  - Flushing [None]
  - Dizziness [None]
  - Hyperhidrosis [None]
  - Confusional state [None]
  - Night sweats [None]

NARRATIVE: CASE EVENT DATE: 20220513
